FAERS Safety Report 8531699 (Version 2)
Quarter: 2013Q2

REPORT INFORMATION
  Report Type: Spontaneous
  Country: US (occurrence: US)
  Receive Date: 20120426
  Receipt Date: 20130517
  Transmission Date: 20140414
  Serious: No
  Sender: FDA-Public Use
  Company Number: US-PFIZER INC-2012096670

PATIENT
  Age: 57 Year
  Sex: Female

DRUGS (1)
  1. FLAGYL [Suspect]
     Dosage: 500 MG, UNK

REACTIONS (2)
  - Gastrointestinal disorder [Unknown]
  - Irritable bowel syndrome [Unknown]
